FAERS Safety Report 15041641 (Version 2)
Quarter: 2019Q3

REPORT INFORMATION
  Report Type: Report from Study
  Country: KR (occurrence: KR)
  Receive Date: 20180621
  Receipt Date: 20190715
  Transmission Date: 20191004
  Serious: Yes (Hospitalization)
  Sender: FDA-Public Use
  Company Number: KR-ROCHE-1908253

PATIENT
  Age: 54 Year
  Sex: Female
  Weight: 55 kg

DRUGS (18)
  1. CARBOPLATIN. [Suspect]
     Active Substance: CARBOPLATIN
     Indication: NON-SMALL CELL LUNG CANCER STAGE IV
     Dosage: DATE OF THE MOST RECENT DOSE PRIOR TO THE EVENT ONSET: 28/FEB/2017 OF 690 MG?ON DAY 1 Q3W FOR 4 OR 6
     Route: 042
     Dates: start: 20170228
  2. FOLIC ACID. [Concomitant]
     Active Substance: FOLIC ACID
     Route: 065
     Dates: start: 20170214
  3. ACTINAMIDE [Concomitant]
     Route: 065
     Dates: start: 20170223, end: 20170223
  4. GASTER [FAMOTIDINE] [Concomitant]
     Route: 065
     Dates: start: 20170313, end: 20170323
  5. PERIOLIMEL N4E [Concomitant]
     Route: 065
     Dates: start: 20170316, end: 20170316
  6. ULCERMIN [SUCRALFATE] [Concomitant]
     Route: 065
     Dates: start: 20170318, end: 20170323
  7. MEGACE [Concomitant]
     Active Substance: MEGESTROL ACETATE
     Route: 065
     Dates: start: 20170330, end: 20170410
  8. ALOXI [Concomitant]
     Active Substance: PALONOSETRON HYDROCHLORIDE
     Route: 065
     Dates: start: 20170319, end: 20170319
  9. PHOSTEN [Concomitant]
     Route: 065
     Dates: start: 20170316, end: 20170316
  10. ALOXI [Concomitant]
     Active Substance: PALONOSETRON HYDROCHLORIDE
     Route: 065
     Dates: start: 20170410, end: 20170410
  11. MATRICARIA RECUTITA [Concomitant]
     Active Substance: MATRICARIA RECUTITA
     Indication: STOMATITIS
     Route: 065
     Dates: start: 20170321, end: 20170321
  12. PEMETREXED. [Suspect]
     Active Substance: PEMETREXED
     Indication: NON-SMALL CELL LUNG CANCER STAGE IV
     Dosage: DATE OF THE MOST RECENT DOSE PRIOR TO THE EVENT ONSET: 28/FEB/2017 OF 790 MG?500 MG/M2 ON DAY 1 Q3W
     Route: 042
     Dates: start: 20170228
  13. NEUTROGIN [Concomitant]
     Active Substance: LENOGRASTIM
     Indication: NEUTROPHIL COUNT DECREASED
     Route: 065
     Dates: start: 20170316, end: 20170316
  14. CALCIUM GLUCONATE. [Concomitant]
     Active Substance: CALCIUM GLUCONATE
     Route: 065
     Dates: start: 20170316, end: 20170316
  15. ATEZOLIZUMAB. [Suspect]
     Active Substance: ATEZOLIZUMAB
     Indication: NON-SMALL CELL LUNG CANCER STAGE IV
     Dosage: DATE OF THE MOST RECENT DOSE PRIOR TO THE EVENT ONSET: 28/FEB/2017 1200 MG
     Route: 042
     Dates: start: 20170228
  16. AGIO [Concomitant]
     Indication: CONSTIPATION
     Dosage: GRAN
     Route: 065
     Dates: start: 20170318, end: 20170323
  17. ALOXI [Concomitant]
     Active Substance: PALONOSETRON HYDROCHLORIDE
     Route: 065
     Dates: start: 20170228, end: 20170228
  18. MACPERAN [Concomitant]
     Active Substance: METOCLOPRAMIDE HYDROCHLORIDE
     Route: 065
     Dates: start: 20170319, end: 20170323

REACTIONS (1)
  - Pharyngitis [Recovered/Resolved]

NARRATIVE: CASE EVENT DATE: 20170309
